FAERS Safety Report 6669316-2 (Version None)
Quarter: 2010Q2

REPORT INFORMATION
  Report Type: 
  Country: None (occurrence: None)
  Receive Date: 20100402
  Receipt Date: 20100322
  Transmission Date: 20101027
  Serious: No
  Sender: FDA-Public Use
  Company Number: 2010SP000904

PATIENT
  Age: 10 Month
  Sex: Male

DRUGS (1)
  1. XOPENEX [Suspect]
     Dosage: PRN

REACTIONS (12)
  - BODY TEMPERATURE INCREASED [None]
  - COUGH [None]
  - ENTEROVIRUS INFECTION [None]
  - HYPOPHAGIA [None]
  - KAPOSI'S VARICELLIFORM ERUPTION [None]
  - RHINORRHOEA [None]
  - SCAB [None]
  - SKIN LESION [None]
  - STAPHYLOCOCCAL SKIN INFECTION [None]
  - TONSILLAR HYPERTROPHY [None]
  - TONSILLAR ULCER [None]
  - URINE OUTPUT DECREASED [None]
